FAERS Safety Report 8507434-4 (Version None)
Quarter: 2012Q3

REPORT INFORMATION
  Report Type: 
  Country: None (occurrence: None)
  Receive Date: 20120712
  Receipt Date: 20120425
  Transmission Date: 20120928
  Serious: Yes (Other)
  Sender: FDA-Public Use
  Company Number: PHHY2012CA029372

PATIENT
  Sex: Male

DRUGS (4)
  1. VITAMIN B-12 [Concomitant]
     Dosage: UNK
  2. EXELON [Suspect]
     Indication: DEMENTIA ALZHEIMER'S TYPE
     Dosage: 4.6 MG, QD
     Route: 062
     Dates: start: 20120327, end: 20120328
  3. MICARDIS [Concomitant]
     Dosage: EVERY MORNING
  4. CALCIUM [Concomitant]
     Dosage: EVERY DAY

REACTIONS (3)
  - APPLICATION SITE ERYTHEMA [None]
  - SPEECH DISORDER [None]
  - CONFUSIONAL STATE [None]
